FAERS Safety Report 25096449 (Version 2)
Quarter: 2025Q2

REPORT INFORMATION
  Report Type: Report from Study
  Country: US (occurrence: US)
  Receive Date: 20250319
  Receipt Date: 20250526
  Transmission Date: 20250716
  Serious: Yes (Life-Threatening, Hospitalization)
  Sender: UCB
  Company Number: US-UCBSA-2024059215

PATIENT
  Sex: Female
  Weight: 89.8 kg

DRUGS (14)
  1. ZILUCOPLAN [Suspect]
     Active Substance: ZILUCOPLAN
     Indication: Myasthenia gravis
     Dosage: 32.4 MILLIGRAM, ONCE DAILY (QD)
     Route: 058
     Dates: start: 20241107
  2. ZILUCOPLAN [Suspect]
     Active Substance: ZILUCOPLAN
     Dosage: 32.4 MILLIGRAM, ONCE DAILY (QD)
     Route: 058
  3. PREDNISONE [Suspect]
     Active Substance: PREDNISONE
     Indication: Product used for unknown indication
  4. DILTIAZEM [Suspect]
     Active Substance: DILTIAZEM
     Indication: Product used for unknown indication
  5. VALSARTAN [Concomitant]
     Active Substance: VALSARTAN
     Indication: Product used for unknown indication
  6. VERAPAMIL [Concomitant]
     Active Substance: VERAPAMIL HYDROCHLORIDE
     Indication: Product used for unknown indication
  7. HYDRALAZINE [Concomitant]
     Active Substance: HYDRALAZINE HYDROCHLORIDE
     Indication: Product used for unknown indication
  8. COENZYME Q10 [Concomitant]
     Active Substance: DIETARY SUPPLEMENT\UBIDECARENONE
     Indication: Product used for unknown indication
  9. VITAMIN D3 [Concomitant]
     Active Substance: CHOLECALCIFEROL
     Indication: Product used for unknown indication
  10. CALCIUM [Concomitant]
     Active Substance: CALCIUM
     Indication: Product used for unknown indication
  11. LOSARTAN [Concomitant]
     Active Substance: LOSARTAN
     Indication: Product used for unknown indication
  12. ROSUVASTATIN [Concomitant]
     Active Substance: ROSUVASTATIN
     Indication: Product used for unknown indication
  13. PYRIDOSTIGMINE [Concomitant]
     Active Substance: PYRIDOSTIGMINE
     Indication: Product used for unknown indication
  14. AMLODIPINE [Concomitant]
     Active Substance: AMLODIPINE BESYLATE
     Indication: Product used for unknown indication

REACTIONS (11)
  - Abdominal discomfort [Recovering/Resolving]
  - Discomfort [Recovering/Resolving]
  - Abdominal pain upper [Recovering/Resolving]
  - Nausea [Recovering/Resolving]
  - Hospitalisation [Recovering/Resolving]
  - Presyncope [Recovering/Resolving]
  - Glycosylated haemoglobin increased [Recovering/Resolving]
  - Hepatic steatosis [Recovering/Resolving]
  - Weight increased [Recovering/Resolving]
  - White blood cell disorder [Recovering/Resolving]
  - Muscular weakness [Not Recovered/Not Resolved]

NARRATIVE: CASE EVENT DATE: 20240101
